FAERS Safety Report 10667663 (Version 1)
Quarter: 2014Q4

REPORT INFORMATION
  Report Type: Spontaneous
  Country: FR (occurrence: None)
  Receive Date: 20141218
  Receipt Date: 20141218
  Transmission Date: 20150529
  Serious: Yes (Hospitalization, Other)
  Sender: FDA-Public Use
  Company Number: FR-ZYDUS-006071

PATIENT
  Age: 93 Year
  Sex: Male

DRUGS (5)
  1. SIMVASTATIN(SIMVASTATIN) [Concomitant]
     Active Substance: SIMVASTATIN
  2. CLOPIDOGREL(CLOPIDOGREL) [Suspect]
     Active Substance: CLOPIDOGREL BISULFATE
     Indication: PRODUCT USED FOR UNKNOWN INDICATION
     Dates: start: 20140101, end: 20141028
  3. KEPPRA(KEPPRA) [Concomitant]
  4. ESOMEPRAZOLE(ESOMEPRAZOLE) [Concomitant]
  5. SODIUM VALPROATE (SODIUM VALPROATE) (500-MG MILLGRAMS) [Suspect]
     Active Substance: VALPROATE SODIUM
     Indication: EPILEPSY
     Dates: start: 20140101, end: 20141028

REACTIONS (4)
  - Drug interaction [None]
  - Subdural haemorrhage [None]
  - Fall [None]
  - Neurological decompensation [None]

NARRATIVE: CASE EVENT DATE: 2014
